FAERS Safety Report 9914034 (Version 1)
Quarter: 2014Q1

REPORT INFORMATION
  Report Type: Spontaneous
  Country: US (occurrence: US)
  Receive Date: 20140220
  Receipt Date: 20140220
  Transmission Date: 20141002
  Serious: No
  Sender: FDA-Public Use
  Company Number: US-BAYER-2014-026595

PATIENT
  Sex: Male

DRUGS (2)
  1. STIVARGA [Suspect]
     Route: 048
  2. STIVARGA [Suspect]
     Dosage: DOSE DECREASED
     Route: 048

REACTIONS (2)
  - Limb discomfort [None]
  - Diarrhoea [None]
